FAERS Safety Report 17092680 (Version 1)
Quarter: 2019Q4

REPORT INFORMATION
  Report Type: Spontaneous
  Country: RU (occurrence: RU)
  Receive Date: 20191129
  Receipt Date: 20191129
  Transmission Date: 20200122
  Serious: Yes (Death, Hospitalization, Other)
  Sender: FDA-Public Use
  Company Number: RU-SA-2019SA330276

PATIENT
  Sex: Male

DRUGS (1)
  1. CAMPATH [Suspect]
     Active Substance: ALEMTUZUMAB
     Indication: TRANSPLANT
     Route: 065

REACTIONS (5)
  - End stage renal disease [Fatal]
  - Inadequate haemodialysis [Fatal]
  - Cor pulmonale acute [Fatal]
  - Off label use [Unknown]
  - Pericarditis [Fatal]
